FAERS Safety Report 11966663 (Version 2)
Quarter: 2016Q1

REPORT INFORMATION
  Report Type: Report from Study
  Country: BR (occurrence: BR)
  Receive Date: 20160127
  Receipt Date: 20160130
  Transmission Date: 20160526
  Serious: Yes (Other)
  Sender: FDA-Public Use
  Company Number: BR-BRISTOL-MYERS SQUIBB COMPANY-BMS-2015-056003

PATIENT
  Age: 58 Year
  Sex: Male
  Weight: 60 kg

DRUGS (3)
  1. TRAMADOL. [Concomitant]
     Active Substance: TRAMADOL
     Indication: PAIN
     Dosage: UNK
     Route: 065
  2. OMEPRAZOLE. [Concomitant]
     Active Substance: OMEPRAZOLE
     Indication: GASTRIC DISORDER
     Route: 065
  3. CETUXIMAB [Suspect]
     Active Substance: CETUXIMAB
     Indication: COLORECTAL CANCER
     Dosage: UNK, Q2WK
     Route: 042
     Dates: start: 201504

REACTIONS (9)
  - Acne [Recovering/Resolving]
  - Hepatic calcification [Unknown]
  - Epistaxis [Recovering/Resolving]
  - Platelet count abnormal [Recovered/Resolved]
  - Hyperaesthesia [Recovering/Resolving]
  - Asthenia [Unknown]
  - Dyspnoea [Not Recovered/Not Resolved]
  - Mucosal ulceration [Recovering/Resolving]
  - Skin exfoliation [Recovering/Resolving]

NARRATIVE: CASE EVENT DATE: 201508
